FAERS Safety Report 7866227-1 (Version None)
Quarter: 2011Q4

REPORT INFORMATION
  Report Type: 
  Country: None (occurrence: None)
  Receive Date: 20111028
  Receipt Date: 20110516
  Transmission Date: 20120403
  Serious: No
  Sender: FDA-Public Use
  Company Number: US-GLAXOSMITHKLINE-A0927519A

PATIENT
  Age: 61 Year
  Sex: Male

DRUGS (4)
  1. TYLENOL-500 [Concomitant]
  2. PRIMATENE MIST [Concomitant]
  3. ADVAIR DISKUS 100/50 [Suspect]
     Indication: CHRONIC OBSTRUCTIVE PULMONARY DISEASE
     Dosage: 1PUFF TWICE PER DAY
     Route: 055
     Dates: start: 20110301
  4. VENTOLIN [Concomitant]

REACTIONS (4)
  - APHONIA [None]
  - FATIGUE [None]
  - CONDITION AGGRAVATED [None]
  - OROPHARYNGEAL PAIN [None]
